FAERS Safety Report 5287743-5 (Version None)
Quarter: 2007Q2

REPORT INFORMATION
  Report Type: 
  Country: None (occurrence: None)
  Receive Date: 20070402
  Receipt Date: 20070402
  Transmission Date: 20071010
  Serious: Yes (Hospitalization)
  Sender: FDA-Public Use
  Company Number: None

PATIENT
  Sex: Female
  Weight: 60.7 kg

DRUGS (1)
  1. CYCLOPHOSPHAMIDE [Suspect]
     Dosage: 11980 MG

REACTIONS (8)
  - ATRIAL FIBRILLATION [None]
  - ATRIAL FLUTTER [None]
  - CYTOMEGALOVIRUS VIRAEMIA [None]
  - NEUTROPENIA [None]
  - PLEURAL EFFUSION [None]
  - RENAL FAILURE [None]
  - RESPIRATORY FAILURE [None]
  - SEPSIS [None]
